FAERS Safety Report 25312923 (Version 1)
Quarter: 2025Q2

REPORT INFORMATION
  Report Type: Spontaneous
  Country: US (occurrence: None)
  Receive Date: 20250513
  Receipt Date: 20250513
  Transmission Date: 20250716
  Serious: No
  Sender: FDA-CTU
  Company Number: None

PATIENT

DRUGS (2)
  1. MUCINEX SINUS-MAX DAY PRESSURE, PAIN AND COUGH AND MUCINEX NIGHTSHIFT [Suspect]
     Active Substance: ACETAMINOPHEN\DEXTROMETHORPHAN HYDROBROMIDE\GUAIFENESIN\PHENYLEPHRINE HYDROCHLORIDE\TRIPROLIDINE HYD
     Indication: Cough
     Route: 048
     Dates: start: 20250513
  2. MUCINEX SINUS-MAX DAY PRESSURE, PAIN AND COUGH AND MUCINEX NIGHTSHIFT [Suspect]
     Active Substance: ACETAMINOPHEN\DEXTROMETHORPHAN HYDROBROMIDE\GUAIFENESIN\PHENYLEPHRINE HYDROCHLORIDE\TRIPROLIDINE HYD
     Indication: Respiratory tract congestion

REACTIONS (1)
  - Expired product administered [None]

NARRATIVE: CASE EVENT DATE: 20250513
